FAERS Safety Report 4947507-6 (Version None)
Quarter: 2006Q1

REPORT INFORMATION
  Report Type: 
  Country: None (occurrence: None)
  Receive Date: 20060320
  Receipt Date: 20060227
  Transmission Date: 20060701
  Serious: Yes (Hospitalization, Other)
  Sender: FDA-Public Use
  Company Number: JP-BRACCO-BRO-009862

PATIENT
  Sex: Male
  Weight: 86.5 kg

DRUGS (7)
  1. IOPAMIRON [Suspect]
     Dosage: 3 ML/SEC
     Route: 013
     Dates: start: 20060221, end: 20060221
  2. IOPAMIRON [Suspect]
     Indication: ANGIOGRAM CEREBRAL
     Dosage: 3 ML/SEC
     Route: 013
     Dates: start: 20060221, end: 20060221
  3. NORVASC                            /00972401/ [Concomitant]
     Route: 050
  4. ZANTAC [Concomitant]
     Route: 050
  5. ASPIRIN [Concomitant]
     Route: 050
     Dates: start: 20060218
  6. DIOVAN                             /01319601/ [Concomitant]
     Route: 058
  7. ATROPINE [Concomitant]
     Route: 050
     Dates: start: 20060221, end: 20060221

REACTIONS (8)
  - BRAIN SCAN ABNORMAL [None]
  - DEPRESSED LEVEL OF CONSCIOUSNESS [None]
  - ENCEPHALOPATHY [None]
  - FLUSHING [None]
  - HEMIANOPIA [None]
  - HEMIPLEGIA [None]
  - NEUROLOGIC NEGLECT SYNDROME [None]
  - VASCULITIS [None]
